FAERS Safety Report 11895535 (Version 2)
Quarter: 2016Q1

REPORT INFORMATION
  Report Type: Spontaneous
  Country: US (occurrence: US)
  Receive Date: 20160107
  Receipt Date: 20160212
  Transmission Date: 20160526
  Serious: Yes (Hospitalization, Other)
  Sender: FDA-Public Use
  Company Number: US-BAYER-2015-497567

PATIENT
  Age: 33 Year
  Sex: Female
  Weight: 58.5 kg

DRUGS (6)
  1. MIRENA [Suspect]
     Active Substance: LEVONORGESTREL
     Indication: CONTRACEPTION
     Dosage: 20 MCG/24HR, CONT
     Route: 015
     Dates: start: 20130910, end: 20150803
  2. BUPROPION. [Concomitant]
     Active Substance: BUPROPION
     Dosage: 300 MG, UNK
     Route: 048
     Dates: start: 20150713
  3. WELLBUTRIN [Concomitant]
     Active Substance: BUPROPION HYDROCHLORIDE
     Indication: DEPRESSION
     Dosage: UNK
     Route: 048
  4. DOCUSATE [Concomitant]
     Active Substance: DOCUSATE
  5. MULTIVITAMIN WITH MINERALS [Concomitant]
     Active Substance: MINERALS\VITAMINS
  6. ALPRAZOLAM. [Concomitant]
     Active Substance: ALPRAZOLAM
     Dosage: 0.25 MG, UNK
     Route: 048
     Dates: start: 20150713

REACTIONS (7)
  - Post procedural discomfort [None]
  - Device dislocation [None]
  - Uterine perforation [None]
  - Post procedural haemorrhage [None]
  - Arthralgia [None]
  - Device issue [None]
  - Anxiety [None]

NARRATIVE: CASE EVENT DATE: 201409
